FAERS Safety Report 23963416 (Version 1)
Quarter: 2024Q2

REPORT INFORMATION
  Report Type: Other
  Country: US (occurrence: None)
  Receive Date: 20240611
  Receipt Date: 20240611
  Transmission Date: 20240716
  Serious: Yes (Disabling, Other)
  Sender: FDA-Public Use
  Company Number: US-ROCHE-1401206

PATIENT
  Age: 51 Year
  Sex: Female
  Weight: 59.02 kg

DRUGS (20)
  1. XOLAIR [Suspect]
     Active Substance: OMALIZUMAB
     Indication: Asthma
     Route: 058
     Dates: start: 20100430
  2. XOLAIR [Suspect]
     Active Substance: OMALIZUMAB
     Indication: Anaphylactic shock
     Dosage: 150 MG PER 1.2 ML INJECTION
     Route: 058
     Dates: start: 201302
  3. XOLAIR [Suspect]
     Active Substance: OMALIZUMAB
     Indication: Hypersensitivity
     Dosage: ONE SHOT IN BOTH ARMS
     Route: 058
  4. XOLAIR [Suspect]
     Active Substance: OMALIZUMAB
     Indication: Asthma
     Route: 058
  5. XOLAIR [Suspect]
     Active Substance: OMALIZUMAB
     Indication: Asthma
  6. XOLAIR [Suspect]
     Active Substance: OMALIZUMAB
     Indication: Idiopathic urticaria
  7. XOPENEX [Concomitant]
     Active Substance: LEVALBUTEROL HYDROCHLORIDE
     Route: 045
  8. ALBUTEROL [Concomitant]
     Active Substance: ALBUTEROL
     Route: 045
  9. ATROVENT [Concomitant]
     Active Substance: IPRATROPIUM BROMIDE
  10. SYMBICORT [Concomitant]
     Active Substance: BUDESONIDE\FORMOTEROL FUMARATE DIHYDRATE
     Route: 045
  11. BIAXIN [Concomitant]
     Active Substance: CLARITHROMYCIN
     Route: 048
  12. SINGULAIR [Concomitant]
     Active Substance: MONTELUKAST SODIUM
     Route: 048
  13. ALLEGRA [Concomitant]
     Active Substance: FEXOFENADINE HYDROCHLORIDE
     Route: 048
  14. FLONASE [Concomitant]
     Active Substance: FLUTICASONE PROPIONATE
     Route: 045
  15. ATARAX [Concomitant]
     Active Substance: HYDROXYZINE HYDROCHLORIDE
  16. TRIAMCINOLONE [Concomitant]
     Active Substance: TRIAMCINOLONE
     Indication: Rash
  17. DULERA [Concomitant]
     Active Substance: FORMOTEROL FUMARATE DIHYDRATE\MOMETASONE FUROATE
     Route: 045
  18. VENTOLIN HFA [Concomitant]
     Active Substance: ALBUTEROL SULFATE
     Route: 045
  19. GABAPENTIN [Concomitant]
     Active Substance: GABAPENTIN
     Route: 048
  20. FLUTICASONE [Concomitant]
     Active Substance: FLUTICASONE

REACTIONS (28)
  - Asthma [Unknown]
  - Pneumothorax [Unknown]
  - Pneumonia [Unknown]
  - Spinal cord injury [Unknown]
  - Wheelchair user [Recovered/Resolved]
  - Pulmonary pain [Unknown]
  - Chest pain [Unknown]
  - Rhinitis [Unknown]
  - Myalgia [Recovered/Resolved]
  - Muscle tightness [Recovered/Resolved]
  - Illness [Unknown]
  - Pain [Unknown]
  - Myalgia [Unknown]
  - Neuralgia [Unknown]
  - Vitamin B12 deficiency [Unknown]
  - Anaemia [Unknown]
  - Bedridden [Unknown]
  - Cough [Not Recovered/Not Resolved]
  - Rhinorrhoea [Unknown]
  - Dyspnoea [Unknown]
  - Nasopharyngitis [Unknown]
  - Lung disorder [Unknown]
  - Stress [Unknown]
  - Gait disturbance [Unknown]
  - Hypersensitivity [Not Recovered/Not Resolved]
  - Aphonia [Not Recovered/Not Resolved]
  - Tonsillar hypertrophy [Not Recovered/Not Resolved]
  - Anaphylactic shock [Recovered/Resolved]

NARRATIVE: CASE EVENT DATE: 20180601
